FAERS Safety Report 13540750 (Version 2)
Quarter: 2017Q2

REPORT INFORMATION
  Report Type: Spontaneous
  Country: GB (occurrence: GB)
  Receive Date: 20170512
  Receipt Date: 20170613
  Transmission Date: 20170830
  Serious: Yes (Other)
  Sender: FDA-Public Use
  Company Number: GB-APOPHARMA USA, INC.-2017AP011662

PATIENT
  Age: 38 Month

DRUGS (2)
  1. ALKERAN [Suspect]
     Active Substance: MELPHALAN
     Indication: RETINOBLASTOMA
     Dosage: UNK, UNKNOWN
     Route: 013
  2. TOPOTECAN [Suspect]
     Active Substance: TOPOTECAN HYDROCHLORIDE
     Indication: RETINOBLASTOMA
     Dosage: 1 MG, OTHER
     Route: 013

REACTIONS (3)
  - Ischaemia [Unknown]
  - VIth nerve paralysis [Unknown]
  - Catheter site related reaction [Unknown]
